FAERS Safety Report 20316893 (Version 1)
Quarter: 2022Q1

REPORT INFORMATION
  Report Type: Spontaneous
  Country: US (occurrence: US)
  Receive Date: 20220110
  Receipt Date: 20220110
  Transmission Date: 20220423
  Serious: No
  Sender: FDA-Public Use
  Company Number: US-GLAXOSMITHKLINE-US2022002624

PATIENT
  Age: 61 Year
  Sex: Female

DRUGS (3)
  1. TRELEGY ELLIPTA [Suspect]
     Active Substance: FLUTICASONE FUROATE\UMECLIDINIUM BROMIDE\VILANTEROL TRIFENATATE
     Indication: Chronic obstructive pulmonary disease
     Dosage: 1 PUFF(S), QD, 200 UG, ORAL INHALATION
     Route: 048
     Dates: start: 20210701
  2. FLUTICASONE [Concomitant]
     Active Substance: FLUTICASONE
     Indication: Nasal congestion
     Dosage: 1 PUFF(S), BID, 50MCG ONE NASAL SPRAY IN THE AM AND ONE IN THE PM
  3. MUCINEX [Concomitant]
     Active Substance: GUAIFENESIN
     Indication: Wheezing
     Dosage: 1200 MG, QD
     Dates: start: 20220104

REACTIONS (1)
  - Pain in extremity [Not Recovered/Not Resolved]

NARRATIVE: CASE EVENT DATE: 20220104
